FAERS Safety Report 5344495-8 (Version None)
Quarter: 2007Q2

REPORT INFORMATION
  Report Type: 
  Country: None (occurrence: None)
  Receive Date: 20070604
  Receipt Date: 20070526
  Transmission Date: 20071010
  Serious: Yes (Other)
  Sender: FDA-Public Use
  Company Number: GB-AMGEN-UK226745

PATIENT
  Sex: Female

DRUGS (2)
  1. ARANESP [Suspect]
     Indication: ANAEMIA
  2. EPREX [Suspect]
     Indication: ANAEMIA
     Dates: start: 20000101, end: 20010101

REACTIONS (1)
  - DRUG INEFFECTIVE [None]
